FAERS Safety Report 6204717-8 (Version None)
Quarter: 2009Q2

REPORT INFORMATION
  Report Type: 
  Country: None (occurrence: None)
  Receive Date: 20090527
  Receipt Date: 20090519
  Transmission Date: 20091009
  Serious: Yes (Hospitalization, Other)
  Sender: FDA-Public Use
  Company Number: PHHY2008MX21768

PATIENT
  Age: 84 Year
  Sex: Male

DRUGS (2)
  1. STALEVO 100 [Suspect]
     Indication: PARKINSON'S DISEASE
     Dosage: 4 TABLETS (200/100/25 MG) PER DAY
     Route: 048
     Dates: start: 20060501, end: 20080911
  2. STALEVO 100 [Suspect]
     Dosage: 4 TABLETS (200/100/25 MG) PER DAY
     Route: 048
     Dates: start: 20080912

REACTIONS (2)
  - BENIGN NEOPLASM OF PROSTATE [None]
  - PROSTATIC OPERATION [None]
